FAERS Safety Report 7317446-4 (Version None)
Quarter: 2011Q1

REPORT INFORMATION
  Report Type: 
  Country: None (occurrence: None)
  Receive Date: 20110226
  Receipt Date: 20101124
  Transmission Date: 20110831
  Serious: No
  Sender: FDA-Public Use
  Company Number: US-ALLERGAN-1014166US

PATIENT
  Age: 67 Year
  Sex: Female

DRUGS (1)
  1. BOTOX COSMETIC [Suspect]
     Indication: SKIN WRINKLING
     Dosage: 8 UNITS, SINGLE
     Route: 030
     Dates: start: 20101021, end: 20101021

REACTIONS (5)
  - VISUAL IMPAIRMENT [None]
  - BLINDNESS [None]
  - VISION BLURRED [None]
  - MIGRAINE WITH AURA [None]
  - MIGRAINE [None]
